FAERS Safety Report 7365083-8 (Version None)
Quarter: 2011Q1

REPORT INFORMATION
  Report Type: 
  Country: None (occurrence: None)
  Receive Date: 20110321
  Receipt Date: 20110315
  Transmission Date: 20110831
  Serious: Yes (Life-Threatening)
  Sender: FDA-Public Use
  Company Number: PT-B.I. PHARMACEUTICALS,INC./RIDGEFIELD-2011-DE-01742PO

PATIENT
  Sex: Male

DRUGS (4)
  1. VIRAMUNE [Suspect]
     Indication: HIV INFECTION
     Dosage: 400 MG
     Route: 048
     Dates: start: 20110114, end: 20110216
  2. VIRAMUNE [Suspect]
     Indication: ACQUIRED IMMUNODEFICIENCY SYNDROME
  3. ABACAVIR SULPHATE + LAMIVUDINE [Suspect]
     Indication: ACQUIRED IMMUNODEFICIENCY SYNDROME
  4. ABACAVIR SULPHATE + LAMIVUDINE [Suspect]
     Indication: HIV INFECTION
     Dosage: 1 UNIT DOSE
     Route: 048
     Dates: start: 20110114, end: 20110216

REACTIONS (7)
  - LIP OEDEMA [None]
  - HYPERHIDROSIS [None]
  - OROPHARYNGEAL DISCOMFORT [None]
  - EYE OEDEMA [None]
  - RASH PAPULAR [None]
  - RASH GENERALISED [None]
  - DYSPNOEA [None]
